FAERS Safety Report 23699959 (Version 9)
Quarter: 2024Q3

REPORT INFORMATION
  Report Type: Spontaneous
  Country: US (occurrence: US)
  Receive Date: 20240403
  Receipt Date: 20240724
  Transmission Date: 20241017
  Serious: Yes (Hospitalization, Other)
  Sender: UNITED THERAPEUTICS
  Company Number: US-UNITED THERAPEUTICS-UNT-2024-001570

PATIENT
  Age: 58 Year
  Sex: Female

DRUGS (17)
  1. ORENITRAM [Suspect]
     Active Substance: TREPROSTINIL
     Indication: Pulmonary arterial hypertension
     Dosage: 14 MG (2 TABLETS OF 5 MG AND 0.25 MG EACH AND 1 TABLET OF 2.5 MG AND 1 MG EACH), TID
  2. ORENITRAM [Suspect]
     Active Substance: TREPROSTINIL
     Dosage: 14.375 MG (1 TABLET OF 0.125 MG, 1 MG AND 2.5 MG EACH, 2 TABLETS OF 5 MG AND 3 TABLETS OF 0.25 MG),
  3. ORENITRAM [Suspect]
     Active Substance: TREPROSTINIL
     Dosage: 14.875 MG (1 TABLET OF 0.125 MG, 0.25 MG, 2.5 MG EACH AND 2 TABLETS OF 1 MG, 5 MG EACH), TID
  4. ORENITRAM [Suspect]
     Active Substance: TREPROSTINIL
     Dosage: 15.125 MG (1 TABLET OF 0.125 MG AND 3 TABLETS OF 5 MG), TID
  5. ORENITRAM [Suspect]
     Active Substance: TREPROSTINIL
     Dosage: 15.75 MG, TID
  6. ORENITRAM [Suspect]
     Active Substance: TREPROSTINIL
     Dosage: 16.125 MG (3 TABLETS OF 5 MG, 1 TABLET OF 1 MG AND 0.125 MG EACH), TID
  7. ORENITRAM [Suspect]
     Active Substance: TREPROSTINIL
     Dosage: 16 MG, TID
  8. ORENITRAM [Suspect]
     Active Substance: TREPROSTINIL
     Dosage: UNK
  9. ORENITRAM [Suspect]
     Active Substance: TREPROSTINIL
     Indication: Pulmonary arterial hypertension
     Dosage: UNK
  10. ORENITRAM [Suspect]
     Active Substance: TREPROSTINIL
     Indication: Pulmonary arterial hypertension
     Dosage: UNK
  11. ORENITRAM [Suspect]
     Active Substance: TREPROSTINIL
     Indication: Pulmonary arterial hypertension
     Dosage: UNK
  12. ORENITRAM [Suspect]
     Active Substance: TREPROSTINIL
     Indication: Pulmonary arterial hypertension
     Dosage: UNK
  13. ORENITRAM [Suspect]
     Active Substance: TREPROSTINIL
     Indication: Pulmonary arterial hypertension
     Dosage: UNK
  14. REMODULIN [Suspect]
     Active Substance: TREPROSTINIL
     Indication: Pulmonary arterial hypertension
     Dosage: 0.100 ?G/KG, CONTINUING
     Route: 041
  15. REMODULIN [Suspect]
     Active Substance: TREPROSTINIL
     Dosage: UNK, CONTINUING
     Route: 041
  16. LETAIRIS [Concomitant]
     Active Substance: AMBRISENTAN
     Indication: Product used for unknown indication
     Dosage: UNK
  17. ADEMPAS [Concomitant]
     Active Substance: RIOCIGUAT
     Indication: Product used for unknown indication
     Dosage: UNK

REACTIONS (26)
  - Dyspnoea at rest [Unknown]
  - Dyspnoea [Not Recovered/Not Resolved]
  - Hypoxia [Unknown]
  - Pain in jaw [Not Recovered/Not Resolved]
  - Diarrhoea [Recovered/Resolved]
  - Headache [Not Recovered/Not Resolved]
  - Nausea [Not Recovered/Not Resolved]
  - Mood altered [Unknown]
  - Decreased activity [Not Recovered/Not Resolved]
  - Condition aggravated [Unknown]
  - Inappropriate schedule of product administration [Unknown]
  - Gait inability [Unknown]
  - Flushing [Unknown]
  - Asthenia [Recovered/Resolved]
  - Pain [Unknown]
  - Dyspnoea exertional [Unknown]
  - Fatigue [Recovered/Resolved]
  - Oedema peripheral [Not Recovered/Not Resolved]
  - Contusion [Unknown]
  - Skin discolouration [Unknown]
  - Ocular hyperaemia [Unknown]
  - SARS-CoV-2 test positive [Unknown]
  - Cough [Not Recovered/Not Resolved]
  - Respiratory tract congestion [Unknown]
  - Lip discolouration [Unknown]
  - Grunting [Unknown]

NARRATIVE: CASE EVENT DATE: 20240623
